FAERS Safety Report 20508650 (Version 1)
Quarter: 2022Q1

REPORT INFORMATION
  Report Type: Spontaneous
  Country: US (occurrence: None)
  Receive Date: 20220223
  Receipt Date: 20220223
  Transmission Date: 20220423
  Serious: Yes (Disabling)
  Sender: FDA-Public Use
  Company Number: None

PATIENT
  Age: 78 Year
  Sex: Female
  Weight: 60.75 kg

DRUGS (3)
  1. FENOFIBRATE [Suspect]
     Active Substance: FENOFIBRATE
     Indication: Blood triglycerides increased
     Dosage: OTHER QUANTITY : 1 CAPSULE(S);?FREQUENCY : DAILY;?
     Route: 048
     Dates: start: 20210915, end: 20211103
  2. LEVOTHYROXINE [Concomitant]
     Active Substance: LEVOTHYROXINE
  3. OMEPRAZOLE [Concomitant]
     Active Substance: OMEPRAZOLE

REACTIONS (18)
  - Paraesthesia [None]
  - Musculoskeletal stiffness [None]
  - Asthenia [None]
  - Muscle atrophy [None]
  - Gait disturbance [None]
  - Dyspnoea [None]
  - Weight decreased [None]
  - Muscle spasms [None]
  - Urine output decreased [None]
  - Constipation [None]
  - Abdominal distension [None]
  - Diarrhoea [None]
  - Hypertension [None]
  - Thirst [None]
  - Dyspepsia [None]
  - Arthralgia [None]
  - Faeces pale [None]
  - Back pain [None]

NARRATIVE: CASE EVENT DATE: 20210929
